FAERS Safety Report 11279400 (Version 4)
Quarter: 2020Q3

REPORT INFORMATION
  Report Type: Report from Study
  Country: US (occurrence: US)
  Receive Date: 20150717
  Receipt Date: 20160531
  Transmission Date: 20201105
  Serious: Yes (Hospitalization)
  Sender: FDA-Public Use
  Company Number: US-JNJFOC-20150621439

PATIENT
  Age: 35 Year
  Sex: Female
  Weight: 150.5 kg

DRUGS (14)
  1. IMURAN [Concomitant]
     Active Substance: AZATHIOPRINE
     Indication: ERYTHEMA NODOSUM
     Route: 048
     Dates: start: 20141001
  2. PLAQUENIL [Concomitant]
     Active Substance: HYDROXYCHLOROQUINE SULFATE
     Indication: ERYTHEMA NODOSUM
     Route: 048
     Dates: start: 20110613, end: 20131226
  3. USTEKINUMAB [Suspect]
     Active Substance: USTEKINUMAB
     Route: 058
  4. ALBUTEROL SULPHATE [Concomitant]
     Active Substance: ALBUTEROL
     Indication: ASTHMA
     Route: 065
     Dates: start: 1998
  5. VERAPAMIL HYDROCHLORIDE. [Concomitant]
     Active Substance: VERAPAMIL HYDROCHLORIDE
     Indication: HYPERTENSION
     Route: 048
     Dates: start: 20140922
  6. ADVAIR DISKUS [Concomitant]
     Active Substance: FLUTICASONE PROPIONATE\SALMETEROL XINAFOATE
     Indication: ASTHMA
     Route: 065
     Dates: start: 2010
  7. LEVSIN [Concomitant]
     Active Substance: HYOSCYAMINE SULFATE
     Indication: ABDOMINAL PAIN
     Route: 065
     Dates: start: 20120612
  8. FOLIC ACID. [Concomitant]
     Active Substance: FOLIC ACID
     Indication: SUPPLEMENTATION THERAPY
     Route: 048
     Dates: start: 201106
  9. PLAQUENIL [Concomitant]
     Active Substance: HYDROXYCHLOROQUINE SULFATE
     Indication: ERYTHEMA NODOSUM
     Route: 048
     Dates: start: 20140703, end: 20150624
  10. PLAQUENIL [Concomitant]
     Active Substance: HYDROXYCHLOROQUINE SULFATE
     Indication: ERYTHEMA NODOSUM
     Route: 048
     Dates: start: 20160224
  11. USTEKINUMAB [Suspect]
     Active Substance: USTEKINUMAB
     Indication: CROHN^S DISEASE
     Dosage: AT 10:24 HOURS
     Route: 058
     Dates: start: 20130401
  12. NORCO [Concomitant]
     Active Substance: ACETAMINOPHEN\HYDROCODONE BITARTRATE
     Indication: ARTHRALGIA
     Route: 048
     Dates: start: 20140901
  13. TRAMADOL. [Concomitant]
     Active Substance: TRAMADOL
     Indication: ARTHRALGIA
     Route: 048
     Dates: start: 2009
  14. TRAMADOL. [Concomitant]
     Active Substance: TRAMADOL
     Indication: ABDOMINAL PAIN
     Route: 048
     Dates: start: 2009

REACTIONS (2)
  - Idiopathic intracranial hypertension [Recovered/Resolved]
  - Abdominal pain [Not Recovered/Not Resolved]

NARRATIVE: CASE EVENT DATE: 20150624
